FAERS Safety Report 12942180 (Version 2)
Quarter: 2016Q4

REPORT INFORMATION
  Report Type: Report from Study
  Country: US (occurrence: US)
  Receive Date: 20161114
  Receipt Date: 20161117
  Transmission Date: 20170207
  Serious: Yes (Other)
  Sender: FDA-Public Use
  Company Number: US-ASTRAZENECA-2016SF16476

PATIENT
  Age: 23909 Day
  Sex: Female
  Weight: 81.8 kg

DRUGS (2)
  1. AZD2281 [Suspect]
     Active Substance: OLAPARIB
     Indication: OVARIAN CANCER
     Route: 048
     Dates: start: 20160224
  2. BYL719 [Suspect]
     Active Substance: ALPELISIB
     Indication: OVARIAN CANCER
     Route: 065
     Dates: start: 20160224

REACTIONS (1)
  - Gingivitis [Recovering/Resolving]

NARRATIVE: CASE EVENT DATE: 20161019
